FAERS Safety Report 5547515-0 (Version None)
Quarter: 2007Q4

REPORT INFORMATION
  Report Type: 
  Country: None (occurrence: None)
  Receive Date: 20071126
  Receipt Date: 20070419
  Transmission Date: 20080405
  Serious: Yes (Other)
  Sender: FDA-Public Use
  Company Number: 2007BH003398

PATIENT
  Age: 38 Year
  Sex: Female

DRUGS (2)
  1. DIANEAL [Suspect]
     Indication: RENAL FAILURE CHRONIC
     Dosage: 6 L; EVERY DAY; IP
     Route: 033
     Dates: start: 20061016
  2. DIANEAL [Suspect]
     Indication: RENAL FAILURE CHRONIC
     Dosage: 6 L; EVERY DAY; IP
     Route: 033
     Dates: start: 20061016

REACTIONS (1)
  - PERITONITIS [None]
